FAERS Safety Report 4495093-X (Version None)
Quarter: 2004Q4

REPORT INFORMATION
  Report Type: 
  Country: None (occurrence: None)
  Receive Date: 20041105
  Receipt Date: 20041105
  Transmission Date: 20050328
  Serious: Yes (Hospitalization)
  Sender: FDA-Public Use
  Company Number: None

PATIENT
  Age: 63 Year
  Sex: Female
  Weight: 57.8 kg

DRUGS (7)
  1. LEXAPRO [Suspect]
     Indication: DEPRESSION
     Dosage: 10 MG    QD     ORAL
     Route: 048
  2. ASPIRIN [Concomitant]
  3. SYNTHROID [Concomitant]
  4. NIFEDIPINE [Concomitant]
  5. SODIUM BICARBONATE [Concomitant]
  6. DIOVAN HCT [Concomitant]
  7. ATENOLOL [Concomitant]

REACTIONS (1)
  - INAPPROPRIATE ANTIDIURETIC HORMONE SECRETION [None]
